FAERS Safety Report 9800712 (Version 1)
Quarter: 2014Q1

REPORT INFORMATION
  Report Type: Spontaneous
  Country: US (occurrence: US)
  Receive Date: 20140107
  Receipt Date: 20140107
  Transmission Date: 20141002
  Serious: Yes (Other)
  Sender: FDA-Public Use
  Company Number: US-SHIRE-ALL1-2013-09098

PATIENT
  Sex: 0

DRUGS (1)
  1. CARBATROL [Suspect]
     Indication: CONVULSION
     Dosage: UNK, UNKNOWN
     Route: 048

REACTIONS (5)
  - Hypersensitivity [Unknown]
  - Scar [Unknown]
  - Oral mucosal blistering [Unknown]
  - Skin exfoliation [Unknown]
  - Rash [Unknown]
